FAERS Safety Report 4822042-4 (Version None)
Quarter: 2005Q4

REPORT INFORMATION
  Report Type: 
  Country: None (occurrence: None)
  Receive Date: 20051107
  Receipt Date: 20051025
  Transmission Date: 20060501
  Serious: Yes (Hospitalization)
  Sender: FDA-Public Use
  Company Number: DE-JNJFOC-20051006015

PATIENT
  Age: 76 Year
  Sex: Female

DRUGS (2)
  1. TOPAMAX [Suspect]
     Route: 048
  2. TOPAMAX [Suspect]
     Indication: EPILEPSY
     Route: 048

REACTIONS (9)
  - AMNESIA [None]
  - ANOREXIA [None]
  - APATHY [None]
  - APHASIA [None]
  - DISTURBANCE IN ATTENTION [None]
  - FALL [None]
  - FATIGUE [None]
  - URGE INCONTINENCE [None]
  - VERTIGO [None]
